FAERS Safety Report 6904347-6 (Version None)
Quarter: 2010Q3

REPORT INFORMATION
  Report Type: 
  Country: None (occurrence: None)
  Receive Date: 20100804
  Receipt Date: 20090505
  Transmission Date: 20110219
  Serious: Yes (Other)
  Sender: FDA-Public Use
  Company Number: US-PFIZER INC-2009184597

PATIENT
  Sex: Male
  Weight: 81.633 kg

DRUGS (10)
  1. LYRICA [Suspect]
     Indication: NEUROPATHY PERIPHERAL
     Dosage: 75 MG, 1X/DAY
     Route: 048
     Dates: start: 20090101
  2. LOVASTATIN [Concomitant]
     Dosage: UNK
  3. METFORMIN [Concomitant]
     Dosage: UNK
  4. GUARANA [Concomitant]
     Dosage: UNK
  5. ACETYLSALICYLIC ACID [Concomitant]
     Dosage: UNK
  6. VITAMIN TAB [Concomitant]
     Dosage: UNK
  7. FEXOFENADINE [Concomitant]
     Dosage: UNK
  8. VITAMIN B-COMPLEX, INCL COMBINATIONS [Concomitant]
     Dosage: UNK
  9. CHONDROITIN/GLUCOSAMINE [Concomitant]
     Indication: BONE DISORDER
     Dosage: UNK
  10. LISINOPRIL [Concomitant]
     Indication: HYPERTENSION
     Dosage: UNK

REACTIONS (5)
  - DYSPNOEA [None]
  - OROPHARYNGEAL PAIN [None]
  - PAIN IN EXTREMITY [None]
  - PHARYNGEAL OEDEMA [None]
  - SOMNOLENCE [None]
